FAERS Safety Report 6702592-6 (Version None)
Quarter: 2010Q2

REPORT INFORMATION
  Report Type: 
  Country: None (occurrence: None)
  Receive Date: 20100429
  Receipt Date: 20100426
  Transmission Date: 20101027
  Serious: Yes (Other)
  Sender: FDA-Public Use
  Company Number: US-ELI_LILLY_AND_COMPANY-US201004006949

PATIENT
  Sex: Female
  Weight: 76.19 kg

DRUGS (16)
  1. BYETTA [Suspect]
     Indication: TYPE 2 DIABETES MELLITUS
     Dosage: 5 UG, 2/D
     Route: 058
     Dates: start: 20070101, end: 20070101
  2. BYETTA [Suspect]
     Dosage: 10 UG, 2/D
     Route: 058
     Dates: start: 20070101, end: 20070101
  3. BYETTA [Suspect]
     Dosage: 5 UG, 2/D
     Route: 058
     Dates: start: 20070101
  4. METOPROLOL [Concomitant]
     Dosage: 50 MG, 3/D
  5. DIGOXIN [Concomitant]
     Dosage: 0.25 UG, DAILY (1/D)
  6. ASPIRIN [Concomitant]
     Dosage: 81 MG, DAILY (1/D)
  7. LASIX [Concomitant]
     Dosage: 20 MG, DAILY (1/D)
  8. FISH OIL [Concomitant]
     Dosage: 1200 MG, 2/D
  9. VITAMIN D [Concomitant]
     Dosage: 1000 U, DAILY (1/D)
  10. SUPER B COMPLEX [Concomitant]
     Dosage: UNK, DAILY (1/D)
  11. CALCIUM CARBONATE [Concomitant]
     Dosage: UNK, DAILY (1/D)
  12. TRICOR [Concomitant]
     Dosage: UNK, DAILY (1/D)
  13. ZETIA [Concomitant]
     Dosage: UNK, DAILY (1/D)
  14. QUINAPRIL [Concomitant]
     Dosage: UNK, DAILY (1/D)
  15. WARFARIN SODIUM [Concomitant]
     Dosage: UNK, DAILY (1/D)
  16. TEKTURNA                           /01763601/ [Concomitant]
     Dosage: 300 MG, DAILY (1/D)
     Dates: start: 20070801

REACTIONS (13)
  - ABDOMINAL PAIN [None]
  - BLOOD GLUCOSE ABNORMAL [None]
  - CONSTIPATION [None]
  - DIARRHOEA [None]
  - DIPLOPIA [None]
  - DRUG DOSE OMISSION [None]
  - HEADACHE [None]
  - NAUSEA [None]
  - RENAL ATROPHY [None]
  - STRABISMUS [None]
  - VISUAL IMPAIRMENT [None]
  - VOMITING [None]
  - WEIGHT DECREASED [None]
